FAERS Safety Report 6693732-6 (Version None)
Quarter: 2010Q2

REPORT INFORMATION
  Report Type: 
  Country: None (occurrence: None)
  Receive Date: 20100421
  Receipt Date: 20100406
  Transmission Date: 20101027
  Serious: Yes (Other)
  Sender: FDA-Public Use
  Company Number: 2010001284

PATIENT
  Sex: Female

DRUGS (2)
  1. TARCEVA [Suspect]
     Indication: NON-SMALL CELL LUNG CANCER METASTATIC
     Dosage: ORAL
     Route: 048
  2. AVASTIN [Suspect]
     Indication: NON-SMALL CELL LUNG CANCER METASTATIC

REACTIONS (1)
  - OSTEONECROSIS OF JAW [None]
